FAERS Safety Report 19070410 (Version 1)
Quarter: 2021Q1

REPORT INFORMATION
  Report Type: Spontaneous
  Country: DE (occurrence: DE)
  Receive Date: 20210329
  Receipt Date: 20210329
  Transmission Date: 20210420
  Serious: Yes (Death, Other)
  Sender: FDA-Public Use
  Company Number: DE-BAXTER-2021BAX005433

PATIENT
  Sex: Female

DRUGS (6)
  1. ENDOXAN [Suspect]
     Active Substance: CYCLOPHOSPHAMIDE
     Route: 048
     Dates: start: 199207
  2. PREDNISONE. [Concomitant]
     Active Substance: PREDNISONE
     Indication: VASCULITIS
     Route: 065
     Dates: start: 199206
  3. ENDOXAN [Suspect]
     Active Substance: CYCLOPHOSPHAMIDE
     Indication: VASCULITIS
     Route: 048
     Dates: start: 199206
  4. ENDOXAN [Suspect]
     Active Substance: CYCLOPHOSPHAMIDE
     Route: 048
     Dates: start: 199303
  5. PREDNISONE. [Concomitant]
     Active Substance: PREDNISONE
     Dosage: WITH A WEEKLY REDUCTION OF 10 MG
     Route: 065
     Dates: start: 199207
  6. ASPIRIN. [Concomitant]
     Active Substance: ASPIRIN
     Indication: VASCULITIS
     Route: 065
     Dates: start: 199207

REACTIONS (1)
  - Myelodysplastic syndrome [Fatal]

NARRATIVE: CASE EVENT DATE: 199707
